FAERS Safety Report 12281545 (Version 4)
Quarter: 2023Q4

REPORT INFORMATION
  Report Type: Spontaneous
  Country: US (occurrence: US)
  Receive Date: 20160419
  Receipt Date: 20231211
  Transmission Date: 20240110
  Serious: Yes (Other)
  Sender: FDA-Public Use
  Company Number: US-SA-2016SA073610

PATIENT
  Age: 78 Year
  Sex: Female

DRUGS (13)
  1. DOCETAXEL [Suspect]
     Active Substance: DOCETAXEL\DOCETAXEL ANHYDROUS
     Indication: Sarcoma
     Dosage: UNK
     Route: 065
  2. DOCETAXEL [Suspect]
     Active Substance: DOCETAXEL\DOCETAXEL ANHYDROUS
     Dosage: UNK
     Route: 065
  3. GEMCITABINE [Suspect]
     Active Substance: GEMCITABINE
     Indication: Sarcoma
     Dosage: UNK
     Route: 065
  4. GEMCITABINE [Suspect]
     Active Substance: GEMCITABINE
     Dosage: UNK
     Route: 065
  5. TIMOLOL [Concomitant]
     Active Substance: TIMOLOL
     Indication: Glaucoma
     Dosage: UNK
     Route: 061
  6. LATANOPROST [Concomitant]
     Active Substance: LATANOPROST
     Indication: Glaucoma
     Dosage: UNK
  7. INSULIN NOS [Concomitant]
     Active Substance: INSULIN NOS
     Dosage: UNK
  8. INSULIN NOS [Concomitant]
     Active Substance: INSULIN NOS
  9. AMLODIPINE [Concomitant]
     Active Substance: AMLODIPINE BESYLATE
     Dosage: UNK
  10. LISINOPRIL [Concomitant]
     Active Substance: LISINOPRIL
     Dosage: UNK
  11. ASPIRIN [Concomitant]
     Active Substance: ASPIRIN
     Dosage: UNK
  12. ASPIRIN [Concomitant]
     Active Substance: ASPIRIN
     Dosage: UNK
  13. HEPARIN [Concomitant]
     Active Substance: HEPARIN SODIUM
     Dosage: UNK
     Route: 058

REACTIONS (7)
  - Choroidal effusion [Recovering/Resolving]
  - Vision blurred [Recovering/Resolving]
  - Visual acuity reduced [Recovering/Resolving]
  - Retinal disorder [Recovering/Resolving]
  - Blindness [Recovering/Resolving]
  - Choroidal detachment [Recovering/Resolving]
  - Toxicity to various agents [Recovering/Resolving]
